FAERS Safety Report 6721868-X (Version None)
Quarter: 2010Q2

REPORT INFORMATION
  Report Type: 
  Country: None (occurrence: None)
  Receive Date: 20100512
  Receipt Date: 20100430
  Transmission Date: 20101027
  Serious: Yes (Disabling, Other)
  Sender: FDA-Public Use
  Company Number: PHHY2010DE28059

PATIENT
  Age: 87 Year
  Sex: Female

DRUGS (9)
  1. AREDIA [Suspect]
     Dosage: 60 MG
     Dates: start: 20020101, end: 20030313
  2. FOSAMAX [Suspect]
     Indication: OSTEOPOROSIS
     Dosage: 70 MG EVERY WEEK
     Dates: start: 20030518, end: 20090903
  3. CALCIUM CARBONATE [Concomitant]
     Indication: OSTEOPOROSIS
     Dosage: 1000 MG, QD
     Dates: start: 20000703
  4. VIGANTOLETTEN [Concomitant]
     Indication: OSTEOPOROSIS
     Dosage: 1000 MG, QD
     Dates: start: 20000731
  5. RIFAMPICIN [Concomitant]
     Indication: ANTIBIOTIC PROPHYLAXIS
     Dosage: 450 MG, QD
     Dates: start: 20090114
  6. LYRICA [Concomitant]
     Indication: MERALGIA PARAESTHETICA
     Dosage: 75 MG, DAILY
     Dates: start: 20100322
  7. DIOVAN [Concomitant]
     Indication: HYPERTENSION
     Dosage: 80 MG, DAILY
  8. DICLOFENAC [Concomitant]
     Indication: MYOPATHY
     Dosage: 75 MG
  9. TRAMAL [Concomitant]
     Indication: MYOPATHY
     Dosage: 150 MG

REACTIONS (4)
  - MUSCULAR WEAKNESS [None]
  - OSTEOPOROSIS [None]
  - PAIN IN EXTREMITY [None]
  - SENSATION OF HEAVINESS [None]
